FAERS Safety Report 4469496-3 (Version None)
Quarter: 2004Q4

REPORT INFORMATION
  Report Type: 
  Country: None (occurrence: None)
  Receive Date: 20041005
  Receipt Date: 20041005
  Transmission Date: 20050328
  Serious: Yes (Hospitalization)
  Sender: FDA-Public Use
  Company Number: None

PATIENT
  Sex: Male

DRUGS (10)
  1. WARFARIN SODIUM [Suspect]
     Indication: MITRAL VALVE REPLACEMENT
     Dosage: 5 MG SUN/ THURS ORAL
     Route: 048
  2. WARFARIN SODIUM [Suspect]
     Dosage: 7.5 MG ALL OTHER ORAL
     Route: 048
  3. DIGOXIN [Concomitant]
  4. LISINOPRIL [Concomitant]
  5. VIAGRA [Concomitant]
  6. FERROUS SULFATE TAB [Concomitant]
  7. ATENOLOL [Concomitant]
  8. ALLOPURINOL [Concomitant]
  9. SIMVASTATIN [Concomitant]
  10. MULTI-VITAMIN [Concomitant]

REACTIONS (4)
  - HAEMATOCRIT DECREASED [None]
  - HAEMOGLOBIN DECREASED [None]
  - INTERNATIONAL NORMALISED RATIO INCREASED [None]
  - RECTAL HAEMORRHAGE [None]
